FAERS Safety Report 6179480-X (Version None)
Quarter: 2009Q2

REPORT INFORMATION
  Report Type: 
  Country: None (occurrence: None)
  Receive Date: 20090505
  Receipt Date: 20090420
  Transmission Date: 20091009
  Serious: Yes (Death)
  Sender: FDA-Public Use
  Company Number: GB-ROCHE-617209

PATIENT
  Age: 66 Year
  Sex: Female

DRUGS (10)
  1. XELODA [Suspect]
     Route: 048
     Dates: start: 20090119
  2. AVASTIN [Suspect]
     Indication: METASTASIS
     Route: 065
  3. OXALIPLATIN [Suspect]
     Dosage: FREQUENCY REPORTED AS EVERY 21/7
     Route: 042
     Dates: start: 20090119
  4. OCTREOTIDE ACETATE [Concomitant]
     Indication: DIARRHOEA
     Dosage: ROUTE REPORTED AS SC PUMP
     Dates: start: 20090223, end: 20090224
  5. NEUPOGEN [Concomitant]
     Indication: NEUTROPENIA
  6. CEFUROXIME [Concomitant]
     Indication: PYREXIA
     Dosage: INDICATION REPORTED AS PYREXIA AND NEUTROPENIA
     Route: 042
  7. BUSCOPAN [Concomitant]
  8. MORPHINE [Concomitant]
  9. HALOPERIDOL [Concomitant]
     Dates: start: 20090225, end: 20090301
  10. CIPROFLOXACIN [Concomitant]
     Route: 042
     Dates: start: 20090221, end: 20090301

REACTIONS (2)
  - COLITIS ISCHAEMIC [None]
  - MIGRAINE [None]
